FAERS Safety Report 8360079-1 (Version None)
Quarter: 2012Q2

REPORT INFORMATION
  Report Type: 
  Country: None (occurrence: None)
  Receive Date: 20120515
  Receipt Date: 20110525
  Transmission Date: 20120825
  Serious: No
  Sender: FDA-Public Use
  Company Number: US-ALEXION-A201100743

PATIENT
  Sex: Male

DRUGS (13)
  1. RITALIN [Suspect]
     Indication: FATIGUE
  2. TEKTURNA [Concomitant]
     Indication: HYPERTENSION
     Dosage: 300 MG QD
  3. VITAMIN D [Concomitant]
     Dosage: 2000  IU QD
  4. CARVEDILOL [Concomitant]
     Indication: HYPERTENSION
     Dosage: 25 MG QID
  5. FOLIC ACID [Concomitant]
     Dosage: 1 MG QD
  6. POTASSIUM CHLORIDE [Concomitant]
     Dosage: 37 MEQ QD
  7. MULTI-VITAMIN [Concomitant]
     Dosage: UNK QD
  8. L-ARGININE [Concomitant]
     Indication: MUSCLE SPASMS
     Dosage: 500 MG QD
  9. ZINC SULFATE [Concomitant]
     Dosage: 50 MG QD
  10. VITAMIN B COMPLEX CAP [Concomitant]
     Dosage: UNK QD
  11. SOLIRIS [Suspect]
     Indication: PAROXYSMAL NOCTURNAL HAEMOGLOBINURIA
     Dosage: 900 MG Q12D
     Route: 042
     Dates: start: 20090301
  12. DIOVAN HCT [Concomitant]
     Indication: HYPERTENSION
     Dosage: 320/12.5 MG QD
  13. FUROSEMIDE [Concomitant]
     Dosage: 20 MG QD

REACTIONS (5)
  - FATIGUE [None]
  - HYPERTENSION [None]
  - BRONCHITIS [None]
  - MUSCLE SPASMS [None]
  - HAEMOGLOBINURIA [None]
